FAERS Safety Report 7122419-0 (Version None)
Quarter: 2010Q4

REPORT INFORMATION
  Report Type: 
  Country: None (occurrence: None)
  Receive Date: 20101124
  Receipt Date: 20101117
  Transmission Date: 20110411
  Serious: Yes (Other)
  Sender: FDA-Public Use
  Company Number: US-NOVOPROD-318643

PATIENT
  Sex: Female
  Weight: 69 kg

DRUGS (1)
  1. NORDITROPIN [Suspect]
     Indication: HYPOPITUITARISM
     Dosage: 1.7 MG, QD
     Route: 058
     Dates: end: 20101117

REACTIONS (2)
  - CRANIOPHARYNGIOMA [None]
  - DISEASE RECURRENCE [None]
